FAERS Safety Report 7293991-5 (Version None)
Quarter: 2011Q1

REPORT INFORMATION
  Report Type: 
  Country: None (occurrence: None)
  Receive Date: 20110215
  Receipt Date: 20110209
  Transmission Date: 20110831
  Serious: Yes (Hospitalization)
  Sender: FDA-Public Use
  Company Number: AT-GILEAD-2010-0034150

PATIENT
  Sex: Female

DRUGS (1)
  1. VIREAD [Suspect]
     Indication: HIV INFECTION
     Dates: start: 20031118, end: 20070809

REACTIONS (3)
  - BONE PAIN [None]
  - FEMUR FRACTURE [None]
  - OSTEOPOROSIS [None]
